FAERS Safety Report 24781197 (Version 4)
Quarter: 2025Q2

REPORT INFORMATION
  Report Type: Spontaneous
  Country: ES (occurrence: ES)
  Receive Date: 20241227
  Receipt Date: 20250403
  Transmission Date: 20250716
  Serious: Yes (Hospitalization, Other)
  Sender: AUROBINDO
  Company Number: ES-TEVA-VS-3274035

PATIENT
  Age: 81 Year
  Sex: Female

DRUGS (10)
  1. FLUOXETINE [Suspect]
     Active Substance: FLUOXETINE HYDROCHLORIDE
     Indication: Reversal of sedation
     Route: 065
  2. FLUOXETINE [Suspect]
     Active Substance: FLUOXETINE HYDROCHLORIDE
     Indication: Bipolar disorder
  3. FLUOXETINE [Suspect]
     Active Substance: FLUOXETINE HYDROCHLORIDE
     Indication: Psychiatric symptom
  4. QUETIAPINE [Suspect]
     Active Substance: QUETIAPINE
     Indication: Bipolar disorder
     Route: 065
  5. QUETIAPINE [Suspect]
     Active Substance: QUETIAPINE
     Indication: Psychiatric symptom
  6. FUROSEMIDE [Suspect]
     Active Substance: FUROSEMIDE
     Indication: Oedema peripheral
     Dosage: 40 MILLIGRAM, TWO TIMES A DAY
     Route: 065
  7. FLUOXETINE [Concomitant]
     Active Substance: FLUOXETINE HYDROCHLORIDE
     Indication: Cardiac failure
     Route: 065
  8. FLUOXETINE [Concomitant]
     Active Substance: FLUOXETINE HYDROCHLORIDE
     Indication: Psychiatric symptom
     Dosage: 40 MILLIGRAM, TWO TIMES A DAY
     Route: 065
  9. FLUMAZENIL [Concomitant]
     Active Substance: FLUMAZENIL
     Indication: Product used for unknown indication
     Route: 065
  10. UREA [Concomitant]
     Active Substance: UREA
     Indication: Product used for unknown indication
     Route: 048

REACTIONS (3)
  - Inappropriate antidiuretic hormone secretion [Recovered/Resolved]
  - Hyponatraemia [Recovered/Resolved]
  - Hypomania [Recovered/Resolved]
